FAERS Safety Report 4779398-0 (Version None)
Quarter: 2005Q3

REPORT INFORMATION
  Report Type: 
  Country: None (occurrence: None)
  Receive Date: 20050927
  Receipt Date: 20050818
  Transmission Date: 20060218
  Serious: Yes (Death, Hospitalization)
  Sender: FDA-Public Use
  Company Number: US-BOEHRINGER INGELHEIM PHARMACEUTICALS, INC.-2005-BP-14356BP

PATIENT
  Sex: Male
  Weight: 55.3 kg

DRUGS (22)
  1. TIPRANAVIR / RITONAVIR CAPSULES [Suspect]
     Indication: HIV INFECTION
     Dosage: TPV/R 1000/400 MG
     Route: 048
     Dates: start: 20021216, end: 20050516
  2. PROTONIX [Concomitant]
     Indication: GASTROOESOPHAGEAL REFLUX DISEASE
     Route: 048
  3. FUZEON [Concomitant]
     Route: 048
  4. EPOGEN [Concomitant]
     Dosage: 1000 UNITS MONDAY, WEDNESDAY AND FRIDAY
  5. VICODIN ES [Concomitant]
     Dosage: 1 EVERY 6 HOURS PRN FOR PAIN
     Route: 048
  6. RESTORIL [Concomitant]
     Dosage: EVERY PM
  7. DIFLUCAN [Concomitant]
  8. FERROUS SULFATE [Concomitant]
  9. MARINOL [Concomitant]
  10. MEGACE [Concomitant]
  11. MYAMBUTOL [Concomitant]
  12. ZERIT [Concomitant]
  13. LANOXIN [Concomitant]
  14. LEXAPRO [Concomitant]
  15. MEPRON [Concomitant]
     Dosage: 750 PLUS 5 ML TWICE A DAY
  16. TENOFOVIR [Concomitant]
  17. CORTEF [Concomitant]
  18. ALDACTONE [Concomitant]
  19. EPIVIR [Concomitant]
  20. LASIX [Concomitant]
  21. MICRO-K [Concomitant]
     Dosage: 40 MEQ THREE TIMES A DAY
  22. MS CONTIN [Concomitant]

REACTIONS (8)
  - AGITATION [None]
  - DEHYDRATION [None]
  - DIARRHOEA [None]
  - END STAGE AIDS [None]
  - HAEMATOCRIT DECREASED [None]
  - HAEMOGLOBIN DECREASED [None]
  - HYPOTENSION [None]
  - ORAL INTAKE REDUCED [None]
